FAERS Safety Report 5442414-7 (Version None)
Quarter: 2007Q3

REPORT INFORMATION
  Report Type: 
  Country: None (occurrence: None)
  Receive Date: 20070829
  Receipt Date: 20070816
  Transmission Date: 20080115
  Serious: Yes (Death)
  Sender: FDA-Public Use
  Company Number: 2007US001961

PATIENT
  Age: 25 Year
  Sex: Female

DRUGS (1)
  1. PROGRAF [Suspect]
     Indication: LUNG TRANSPLANT REJECTION
     Dosage: 4 MG, BID, ORAL; 0.5 MG, BID, ORAL
     Route: 048

REACTIONS (1)
  - LUNG TRANSPLANT REJECTION [None]
